FAERS Safety Report 26022092 (Version 2)
Quarter: 2025Q4

REPORT INFORMATION
  Report Type: Spontaneous
  Country: US (occurrence: US)
  Receive Date: 20251110
  Receipt Date: 20251216
  Transmission Date: 20260118
  Serious: No
  Sender: SANOFI AVENTIS
  Company Number: US-SA-2025SA330564

PATIENT
  Age: 17 Year
  Sex: Female

DRUGS (1)
  1. DUPIXENT [Suspect]
     Active Substance: DUPILUMAB
     Indication: Eosinophilic oesophagitis
     Dosage: 300 MG, QW
     Route: 058
     Dates: start: 20250218

REACTIONS (6)
  - Acne [Recovered/Resolved]
  - Skin swelling [Unknown]
  - Genital rash [Not Recovered/Not Resolved]
  - Dysuria [Not Recovered/Not Resolved]
  - Skin irritation [Unknown]
  - Skin fissures [Unknown]

NARRATIVE: CASE EVENT DATE: 20250101
